FAERS Safety Report 21755338 (Version 2)
Quarter: 2023Q1

REPORT INFORMATION
  Report Type: Spontaneous
  Country: GB (occurrence: GB)
  Receive Date: 20221220
  Receipt Date: 20230104
  Transmission Date: 20230418
  Serious: Yes (Other)
  Sender: FDA-Public Use
  Company Number: None

PATIENT
  Age: 40 Year
  Sex: Female
  Weight: 97 kg

DRUGS (11)
  1. DOXYCYCLINE [Suspect]
     Active Substance: DOXYCYCLINE
     Indication: Ill-defined disorder
     Dosage: 100 MILLIGRAM, QD (TAKE TWO NOW THEN ONE FOR 4 DAYS TO TREAT.)
     Route: 048
     Dates: start: 20221207, end: 20221212
  2. AMOXICILLIN [Concomitant]
     Active Substance: AMOXICILLIN
     Indication: Ill-defined disorder
     Dosage: 1 DOSAGE FORM, TID (ONE TO BE TAKEN THREE TIMES A DAY FOR 5 DAYS)
     Route: 065
     Dates: start: 20221207, end: 20221212
  3. CITALOPRAM [Concomitant]
     Active Substance: CITALOPRAM HYDROBROMIDE
     Indication: Ill-defined disorder
     Dosage: 2 DOSAGE FORM, QD
     Route: 065
     Dates: start: 20210528
  4. AMOXICILLIN\CLAVULANATE POTASSIUM [Concomitant]
     Active Substance: AMOXICILLIN\CLAVULANATE POTASSIUM
     Indication: Otitis media
     Dosage: 1 DOSAGE FORM TID (OTITIS MEDIA (2ND LINE): TAKE ONE TABLET THREE)
     Route: 065
     Dates: start: 20220926, end: 20221001
  5. DOXYCYCLINE [Concomitant]
     Active Substance: DOXYCYCLINE
     Indication: Ill-defined disorder
     Dosage: UNK, QD (TAKE TWO NOW THEN ONE DAILY FOR 4 DAYS TO TREAT)
     Route: 065
     Dates: start: 20221207, end: 20221212
  6. GABAPENTIN [Concomitant]
     Active Substance: GABAPENTIN
     Indication: Ill-defined disorder
     Dosage: 2 DOSAGE FORM, TID
     Route: 065
     Dates: start: 20220824, end: 20221207
  7. MORPHINE SULFATE [Concomitant]
     Active Substance: MORPHINE SULFATE
     Indication: Ill-defined disorder
     Dosage: 5 MILLILITER (TAKE 5ML (10MG) EVERY 4-6 HOURS WHEN REQUIRED F)
     Route: 065
     Dates: start: 20221208
  8. MORPHINE SULFATE [Concomitant]
     Active Substance: MORPHINE SULFATE
     Dosage: 10 MILLIGRAM, PRN (AS NECESSARY,TAKE 5ML EVERY 4-6 HOURS)
     Route: 065
     Dates: start: 20221208
  9. PREGABALIN [Concomitant]
     Active Substance: PREGABALIN
     Indication: Ill-defined disorder
     Dosage: 1 DOSAGE FORM, BID (TAKE ONE CAPSULE TWICE DAILY)
     Route: 065
     Dates: start: 20221025
  10. MEDROXYPROGESTERONE\MEDROXYPROGESTERONE ACETATE [Concomitant]
     Active Substance: MEDROXYPROGESTERONE\MEDROXYPROGESTERONE ACETATE
     Indication: Ill-defined disorder
     Dosage: UNK (USE AS DIRECTED)
     Route: 065
     Dates: start: 20221003
  11. ACETAMINOPHEN\CODEINE PHOSPHATE [Concomitant]
     Active Substance: ACETAMINOPHEN\CODEINE PHOSPHATE
     Indication: Ill-defined disorder
     Dosage: UNK (ONE OR TWO TABLETS TO BE TAKEN FOUR TO SIX HOUR..)
     Route: 065
     Dates: start: 20220321

REACTIONS (2)
  - Abdominal pain [Recovered/Resolved]
  - Vomiting [Recovered/Resolved]

NARRATIVE: CASE EVENT DATE: 20221214
